FAERS Safety Report 7824226-X (Version None)
Quarter: 2011Q4

REPORT INFORMATION
  Report Type: 
  Country: None (occurrence: None)
  Receive Date: 20111019
  Receipt Date: 20111012
  Transmission Date: 20120403
  Serious: Yes (Other)
  Sender: FDA-Public Use
  Company Number: US-JNJFOC-20110800863

PATIENT
  Sex: Male
  Weight: 170.1 kg

DRUGS (3)
  1. STELARA [Suspect]
     Route: 058
     Dates: start: 20110616
  2. HYZAAR [Concomitant]
     Indication: HYPERTENSION
     Dosage: STRENGTH 100 MG+ 25 MG
     Route: 048
  3. STELARA [Suspect]
     Indication: PSORIASIS
     Route: 058
     Dates: start: 20110519

REACTIONS (4)
  - VITREOUS DETACHMENT [None]
  - AGE-RELATED MACULAR DEGENERATION [None]
  - MACULAR OEDEMA [None]
  - VISUAL IMPAIRMENT [None]
